FAERS Safety Report 8162427-4 (Version None)
Quarter: 2012Q1

REPORT INFORMATION
  Report Type: 
  Country: None (occurrence: None)
  Receive Date: 20120221
  Receipt Date: 20120207
  Transmission Date: 20120608
  Serious: Yes (Other)
  Sender: FDA-Public Use
  Company Number: 2012AP000329

PATIENT
  Age: 43 Year
  Sex: Female

DRUGS (5)
  1. PHENYTOIN [Concomitant]
  2. LAMOTRIGINE [Concomitant]
  3. LEVETIRACETAM [Suspect]
     Indication: CONVULSION
     Dosage: 2 TAB;BID;PO
     Route: 048
     Dates: start: 20111107
  4. IBUPROFEN [Concomitant]
  5. LEVETIRACETAM [Concomitant]

REACTIONS (3)
  - CONVULSION [None]
  - CONDITION AGGRAVATED [None]
  - PRODUCT SUBSTITUTION ISSUE [None]
